FAERS Safety Report 4771338-3 (Version None)
Quarter: 2005Q3

REPORT INFORMATION
  Report Type: 
  Country: None (occurrence: None)
  Receive Date: 20050915
  Receipt Date: 20050629
  Transmission Date: 20060218
  Serious: Yes (Hospitalization)
  Sender: FDA-Public Use
  Company Number: US-MERCK-0507USA00203

PATIENT
  Age: 55 Year
  Sex: Female
  Weight: 68 kg

DRUGS (13)
  1. VIOXX [Suspect]
     Indication: PAIN IN EXTREMITY
     Route: 048
     Dates: start: 20000612, end: 20040901
  2. CARISOPRODOL [Concomitant]
     Route: 065
  3. HYDROCODONE BITARTRATE + ACETAMINOPHEN [Concomitant]
     Route: 065
  4. IBUPROFEN [Concomitant]
     Route: 065
  5. LIPITOR [Concomitant]
     Route: 065
  6. SYNTHROID [Concomitant]
     Route: 065
  7. AMOXICILLIN [Concomitant]
     Route: 065
  8. ACETAMINOPHEN [Concomitant]
     Route: 065
  9. ALBUTEROL [Concomitant]
     Route: 065
  10. AUGMENTIN [Concomitant]
     Route: 065
  11. FUROSEMIDE [Concomitant]
     Route: 065
  12. K-DUR 10 [Concomitant]
     Route: 065
  13. VIOXX [Suspect]
     Indication: NECK PAIN
     Route: 048
     Dates: start: 20000612, end: 20040901

REACTIONS (19)
  - ACUTE MYOCARDIAL INFARCTION [None]
  - AORTIC VALVE INCOMPETENCE [None]
  - ASTHMA EXERCISE INDUCED [None]
  - BLOOD TRIGLYCERIDES INCREASED [None]
  - CHEST DISCOMFORT [None]
  - CORONARY ARTERY ATHEROSCLEROSIS [None]
  - DEPRESSION [None]
  - DISCOMFORT [None]
  - DYSPEPSIA [None]
  - DYSPNOEA [None]
  - FATIGUE [None]
  - HEADACHE [None]
  - HYPERLIPIDAEMIA [None]
  - MITRAL VALVE PROLAPSE [None]
  - OEDEMA PERIPHERAL [None]
  - OSTEOARTHRITIS [None]
  - PALPITATIONS [None]
  - SINUS BRADYCARDIA [None]
  - VENTRICULAR HYPOKINESIA [None]
